FAERS Safety Report 8397041-9 (Version None)
Quarter: 2012Q2

REPORT INFORMATION
  Report Type: 
  Country: None (occurrence: None)
  Receive Date: 20120530
  Receipt Date: 20120521
  Transmission Date: 20120825
  Serious: No
  Sender: FDA-Public Use
  Company Number: US-TEVA-339767USA

PATIENT
  Sex: Male
  Weight: 68.1 kg

DRUGS (14)
  1. AZILECT [Suspect]
     Indication: PARKINSON'S DISEASE
     Route: 048
     Dates: start: 20120509
  2. DOCUSATE SODIUM [Concomitant]
     Indication: DIARRHOEA
  3. ISOSORBIDE DINITRATE [Concomitant]
  4. ASPIRIN [Concomitant]
     Indication: CARDIAC DISORDER
  5. FAMOTIDINE [Concomitant]
  6. SIMVASTATIN [Concomitant]
     Indication: HYPERCHOLESTEROLAEMIA
     Route: 048
  7. LEVETIRACETAM [Concomitant]
     Indication: CONVULSION
  8. SINEMET [Concomitant]
     Indication: PARKINSON'S DISEASE
  9. COLECALCIFEROL [Concomitant]
     Indication: MEDICAL DIET
     Route: 048
  10. LISINOPRIL [Concomitant]
  11. LEVOTHYROXINE SODIUM [Concomitant]
     Indication: HYPOTHYROIDISM
  12. METFORMIN HCL [Concomitant]
     Indication: DIABETES MELLITUS
  13. DONEPEZIL HCL [Concomitant]
  14. MEMANTINE HYDROCHLORIDE [Concomitant]

REACTIONS (1)
  - RASH [None]
